FAERS Safety Report 4618261-2 (Version None)
Quarter: 2005Q1

REPORT INFORMATION
  Report Type: 
  Country: None (occurrence: None)
  Receive Date: 20050323
  Receipt Date: 20050307
  Transmission Date: 20050727
  Serious: Yes (Hospitalization)
  Sender: FDA-Public Use
  Company Number: WAES 0503ITA00014

PATIENT
  Age: 39 Year
  Sex: Female

DRUGS (2)
  1. CRIXIVAN [Suspect]
     Indication: HIV INFECTION
  2. STAVUDINE [Suspect]
     Indication: HIV INFECTION

REACTIONS (2)
  - CAROTID ARTERY STENOSIS [None]
  - FEMORAL ARTERIAL STENOSIS [None]
